FAERS Safety Report 7913614-9 (Version None)
Quarter: 2011Q4

REPORT INFORMATION
  Report Type: 
  Country: None (occurrence: None)
  Receive Date: 20111115
  Receipt Date: 20111109
  Transmission Date: 20120403
  Serious: No
  Sender: FDA-Public Use
  Company Number: US-PFIZER INC-2011275244

PATIENT
  Age: 59 Year
  Sex: Female

DRUGS (1)
  1. NORVASC [Suspect]
     Dosage: 2.5 MG, UNK

REACTIONS (2)
  - MALAISE [None]
  - BLOOD PRESSURE INCREASED [None]
